FAERS Safety Report 7608268 (Version 7)
Quarter: 2015Q1

REPORT INFORMATION
  Report Type: Spontaneous
  Country: US (occurrence: US)
  Receive Date: 20100927
  Receipt Date: 20150219
  Transmission Date: 20150721
  Serious: Yes (Other)
  Sender: FDA-Public Use
  Company Number: US-ASTRAZENECA-2010SE24928

PATIENT
  Age: 919 Month
  Sex: Female
  Weight: 45.4 kg

DRUGS (11)
  1. CRESTOR [Suspect]
     Active Substance: ROSUVASTATIN CALCIUM
     Indication: BLOOD CHOLESTEROL INCREASED
     Route: 048
     Dates: start: 201005
  2. ARIMIDEX [Suspect]
     Active Substance: ANASTROZOLE
     Indication: BREAST CANCER
     Route: 048
     Dates: start: 200710, end: 201210
  3. VITAMIN B12 [Concomitant]
     Active Substance: CYANOCOBALAMIN
     Indication: SUPPLEMENTATION THERAPY
     Dosage: MONTHLY WITH THE DOSE AND ROUTE OF INJECTION NOT
  4. NEXIUM [Suspect]
     Active Substance: ESOMEPRAZOLE MAGNESIUM
     Route: 048
  5. FISH OIL [Concomitant]
     Active Substance: FISH OIL
     Indication: BLOOD CHOLESTEROL ABNORMAL
  6. CALCIUM [Concomitant]
     Active Substance: CALCIUM
  7. VITAMIN C [Concomitant]
     Active Substance: ASCORBIC ACID
  8. THERAGRAN WITH D3 AND CALCIUM [Concomitant]
     Indication: OSTEOPOROSIS
     Dosage: 600 UNIT BID
  9. RECLAST [Concomitant]
     Active Substance: ZOLEDRONIC ACID
     Indication: BONE DISORDER
     Route: 042
  10. ATENOLOL. [Suspect]
     Active Substance: ATENOLOL
     Indication: HYPERTENSION
     Route: 065
  11. CRESTOR [Suspect]
     Active Substance: ROSUVASTATIN CALCIUM
     Indication: BLOOD CHOLESTEROL INCREASED
     Route: 048
     Dates: start: 2013

REACTIONS (19)
  - Aortic aneurysm [Unknown]
  - Restless legs syndrome [Not Recovered/Not Resolved]
  - Abdominal distension [Unknown]
  - Limb discomfort [Not Recovered/Not Resolved]
  - Irritability [Unknown]
  - Glassy eyes [Unknown]
  - Secretion discharge [Unknown]
  - Lower limb fracture [Unknown]
  - Hair disorder [Unknown]
  - Rhinorrhoea [Unknown]
  - Pruritus [Unknown]
  - Eye infection [Unknown]
  - Fall [Unknown]
  - Flatulence [Unknown]
  - Dry skin [Unknown]
  - Nausea [Recovered/Resolved]
  - Asthenia [Unknown]
  - Ocular hyperaemia [Unknown]
  - Cough [Unknown]

NARRATIVE: CASE EVENT DATE: 200710
